FAERS Safety Report 7406700-3 (Version None)
Quarter: 2011Q2

REPORT INFORMATION
  Report Type: 
  Country: None (occurrence: None)
  Receive Date: 20110411
  Receipt Date: 20110401
  Transmission Date: 20111010
  Serious: Yes (Hospitalization, Other)
  Sender: FDA-Public Use
  Company Number: CN-SANOFI-AVENTIS-2010SA078500

PATIENT
  Age: 79 Year
  Sex: Male

DRUGS (6)
  1. FELODIPINE [Concomitant]
     Indication: HYPERTENSION
     Dates: start: 20040101
  2. VALSARTAN [Concomitant]
     Indication: HYPERTENSION
     Dates: start: 20040101
  3. OPTIPEN [Suspect]
  4. INSULIN GLARGINE [Suspect]
     Route: 058
     Dates: start: 20050315
  5. BLINDED THERAPY [Suspect]
     Dates: start: 20050315
  6. ACARBOSE [Concomitant]
     Dates: start: 20031201

REACTIONS (2)
  - HAEMATURIA [None]
  - PROSTATE CANCER [None]
